FAERS Safety Report 7320014-1 (Version None)
Quarter: 2011Q1

REPORT INFORMATION
  Report Type: 
  Country: None (occurrence: None)
  Receive Date: 20110228
  Receipt Date: 20110215
  Transmission Date: 20110831
  Serious: No
  Sender: FDA-Public Use
  Company Number: US-ROXANE LABORATORIES, INC.-2011-RO-00195RO

PATIENT
  Age: 49 Year
  Sex: Female

DRUGS (5)
  1. ANASTROZOLE [Suspect]
     Indication: BREAST CANCER
     Dates: start: 20110125, end: 20110211
  2. WELBUTRIN 300 XL [Concomitant]
     Dates: start: 20030101
  3. RECLAST [Concomitant]
  4. DAILY VITAMINS [Concomitant]
  5. VYVANCE 40 [Concomitant]
     Dates: start: 20070801

REACTIONS (12)
  - HEADACHE [None]
  - PAIN IN JAW [None]
  - CHEST DISCOMFORT [None]
  - BACK PAIN [None]
  - ASTHENIA [None]
  - HOT FLUSH [None]
  - FATIGUE [None]
  - ACTIVITIES OF DAILY LIVING IMPAIRED [None]
  - ARTHRALGIA [None]
  - NECK PAIN [None]
  - PALPITATIONS [None]
  - MUSCULOSKELETAL PAIN [None]
